FAERS Safety Report 11613550 (Version 1)
Quarter: 2015Q4

REPORT INFORMATION
  Report Type: Spontaneous
  Country: US (occurrence: US)
  Receive Date: 20151008
  Receipt Date: 20151008
  Transmission Date: 20160304
  Serious: No
  Sender: FDA-Public Use
  Company Number: US-ELI_LILLY_AND_COMPANY-US201510001107

PATIENT
  Sex: Female

DRUGS (2)
  1. HUMALOG [Suspect]
     Active Substance: INSULIN LISPRO
     Indication: TYPE 1 DIABETES MELLITUS
     Dosage: UNK, UNKNOWN
     Route: 065
     Dates: start: 2014
  2. LEVEMIR [Concomitant]
     Active Substance: INSULIN DETEMIR

REACTIONS (4)
  - Injection site atrophy [Unknown]
  - Blood glucose increased [Unknown]
  - Underdose [Unknown]
  - Injection site pain [Unknown]

NARRATIVE: CASE EVENT DATE: 2014
